FAERS Safety Report 5365158-9 (Version None)
Quarter: 2007Q2

REPORT INFORMATION
  Report Type: 
  Country: None (occurrence: None)
  Receive Date: 20070530
  Receipt Date: 20070125
  Transmission Date: 20071010
  Serious: No
  Sender: FDA-Public Use
  Company Number: 2006PV018323

PATIENT
  Age: 56 Year
  Sex: Female
  Weight: 85.7298 kg

DRUGS (11)
  1. BYETTA [Suspect]
     Indication: DIABETES MELLITUS NON-INSULIN-DEPENDENT
     Dosage: 10 MCG; BID; SC; 5 MCG; BID; SC
     Route: 058
     Dates: start: 20060301, end: 20060401
  2. BYETTA [Suspect]
     Indication: DIABETES MELLITUS NON-INSULIN-DEPENDENT
     Dosage: 10 MCG; BID; SC; 5 MCG; BID; SC
     Route: 058
     Dates: start: 20060401
  3. BYETTA [Suspect]
  4. METFORMIN HCL [Concomitant]
  5. PRANDIN [Concomitant]
  6. ........................ [Concomitant]
  7. ................. [Concomitant]
  8. ......................... [Concomitant]
  9. ....................... [Concomitant]
  10. ....................... [Concomitant]
  11. ..................... [Concomitant]

REACTIONS (4)
  - BLOOD GLUCOSE INCREASED [None]
  - ERUCTATION [None]
  - GLYCOSYLATED HAEMOGLOBIN INCREASED [None]
  - WEIGHT INCREASED [None]
